FAERS Safety Report 6427673-6 (Version None)
Quarter: 2009Q4

REPORT INFORMATION
  Report Type: 
  Country: None (occurrence: None)
  Receive Date: 20091105
  Receipt Date: 20091027
  Transmission Date: 20100525
  Serious: Yes (Other)
  Sender: FDA-Public Use
  Company Number: GB-RANBAXY-2009RR-21129

PATIENT
  Age: 53 Year
  Sex: Male
  Weight: 82 kg

DRUGS (4)
  1. GABAPENTIN [Suspect]
     Indication: ANALGESIC THERAPY
     Dosage: 300 MG, UNK
     Route: 048
     Dates: start: 20080331, end: 20080520
  2. LANSOPRAZOLE [Concomitant]
     Indication: DUODENAL ULCER
     Dosage: 30 MG, QD
     Route: 048
     Dates: start: 20060908
  3. PANCREATIN [Concomitant]
     Indication: PANCREATITIS
     Dosage: 2 DF, TID
     Route: 048
     Dates: start: 20071005
  4. TRAMADOL HCL [Concomitant]
     Indication: BACK PAIN
     Dosage: 100 MG, QID
     Route: 048
     Dates: start: 20071005

REACTIONS (2)
  - DEPRESSED MOOD [None]
  - SUICIDAL IDEATION [None]
